FAERS Safety Report 5977586-9 (Version None)
Quarter: 2008Q4

REPORT INFORMATION
  Report Type: 
  Country: None (occurrence: None)
  Receive Date: 20081125
  Receipt Date: 20081113
  Transmission Date: 20090506
  Serious: Yes (Hospitalization)
  Sender: FDA-Public Use
  Company Number: MEDI-0007519

PATIENT
  Age: 3 Month
  Sex: Male

DRUGS (1)
  1. SYNAGIS [Suspect]
     Dates: start: 20081106, end: 20081106

REACTIONS (5)
  - NASOPHARYNGITIS [None]
  - RASH GENERALISED [None]
  - RESPIRATORY RATE INCREASED [None]
  - SEPSIS [None]
  - SKIN EXFOLIATION [None]
